FAERS Safety Report 4596119-5 (Version None)
Quarter: 2005Q1

REPORT INFORMATION
  Report Type: 
  Country: None (occurrence: None)
  Receive Date: 20050225
  Receipt Date: 20050210
  Transmission Date: 20050727
  Serious: Yes (Other)
  Sender: FDA-Public Use
  Company Number: 2005-BP-02219RO

PATIENT
  Age: 54 Year
  Sex: Female
  Weight: 55.6 kg

DRUGS (3)
  1. MEGACE [Suspect]
     Indication: DECREASED APPETITE
     Dosage: 400 MG TWICE DAILY (NR), PO
     Route: 048
  2. PHENYTOIN [Concomitant]
  3. WARFARIN SODIUM [Concomitant]

REACTIONS (9)
  - ABDOMINAL PAIN [None]
  - ASPARTATE AMINOTRANSFERASE INCREASED [None]
  - BLOOD ALKALINE PHOSPHATASE INCREASED [None]
  - BLOOD CORTISOL ABNORMAL [None]
  - CONDITION AGGRAVATED [None]
  - HAEMOGLOBIN DECREASED [None]
  - MEAN CELL VOLUME INCREASED [None]
  - OSTEOPOROSIS [None]
  - SPINAL COMPRESSION FRACTURE [None]
